FAERS Safety Report 5124061-X (Version None)
Quarter: 2006Q4

REPORT INFORMATION
  Report Type: 
  Country: None (occurrence: None)
  Receive Date: 20061010
  Receipt Date: 20050927
  Transmission Date: 20070319
  Serious: No
  Sender: FDA-Public Use
  Company Number: US-BRISTOL-MYERS SQUIBB COMPANY-13123898

PATIENT
  Sex: Female

DRUGS (1)
  1. AVAPRO [Suspect]
     Indication: HYPERTENSION
     Dosage: DURATION OF THERAPY:  ^A COUPLE OF MONTHS^
     Route: 048
     Dates: start: 20050101

REACTIONS (2)
  - DYSGEUSIA [None]
  - DYSPHAGIA [None]
